FAERS Safety Report 15850099 (Version 1)
Quarter: 2019Q1

REPORT INFORMATION
  Report Type: Spontaneous
  Country: US (occurrence: US)
  Receive Date: 20190121
  Receipt Date: 20190121
  Transmission Date: 20190417
  Serious: No
  Sender: FDA-Public Use
  Company Number: US-SA-2019SA013941

PATIENT
  Age: 45 Year
  Sex: Male

DRUGS (2)
  1. TOUJEO [Suspect]
     Active Substance: INSULIN GLARGINE
     Dosage: 30 U, QD
     Route: 065
     Dates: start: 201806
  2. TOUJEO [Suspect]
     Active Substance: INSULIN GLARGINE
     Dosage: 300 U, 1X

REACTIONS (1)
  - Overdose [Unknown]
